FAERS Safety Report 24655226 (Version 1)
Quarter: 2024Q4

REPORT INFORMATION
  Report Type: Report from Study
  Country: US (occurrence: US)
  Receive Date: 20241123
  Receipt Date: 20241123
  Transmission Date: 20250115
  Serious: Yes (Other)
  Sender: JOHNSON AND JOHNSON
  Company Number: US-ABBVIE-5824430

PATIENT
  Sex: Female

DRUGS (1)
  1. IMBRUVICA [Suspect]
     Active Substance: IBRUTINIB
     Indication: Waldenstrom^s macroglobulinaemia
     Route: 048
     Dates: start: 20230504

REACTIONS (4)
  - Ageusia [Recovering/Resolving]
  - Oral disorder [Not Recovered/Not Resolved]
  - Urinary tract infection [Unknown]
  - Retinal oedema [Recovering/Resolving]
